FAERS Safety Report 8879703 (Version 1)
Quarter: 2012Q4

REPORT INFORMATION
  Report Type: 
  Country: GR (occurrence: GR)
  Receive Date: 20121031
  Receipt Date: 20121031
  Transmission Date: 20130627
  Serious: Yes (Life-Threatening)
  Sender: FDA-Public Use
  Company Number: GR-ASTRAZENECA-2012SE81693

PATIENT
  Age: 38 Year
  Sex: Female
  Weight: 74 kg

DRUGS (3)
  1. SYMBICORT TBH [Suspect]
     Indication: ASTHMA
     Dosage: 160+4.5mcg four times a day
     Route: 055
     Dates: start: 20121006, end: 20121009
  2. SYMBICORT TBH [Suspect]
     Indication: COUGH
     Dosage: 160+4.5mcg four times a day
     Route: 055
     Dates: start: 20121006, end: 20121009
  3. MEDROL [Concomitant]
     Indication: LARYNGITIS
     Route: 048

REACTIONS (5)
  - Dyspnoea [Unknown]
  - Lip oedema [Unknown]
  - Tongue oedema [Unknown]
  - Palatal oedema [Unknown]
  - Oral fungal infection [Unknown]
